FAERS Safety Report 6877316-2 (Version None)
Quarter: 2010Q3

REPORT INFORMATION
  Report Type: 
  Country: None (occurrence: None)
  Receive Date: 20100727
  Receipt Date: 20090904
  Transmission Date: 20110219
  Serious: No
  Sender: FDA-Public Use
  Company Number: US-ABBOTT-09P-163-0596149-00

PATIENT
  Sex: Female
  Weight: 98.972 kg

DRUGS (4)
  1. SYNTHROID [Suspect]
     Indication: HYPOTHYROIDISM
     Dates: start: 19930101
  2. NEURONTIN [Concomitant]
     Indication: BIPOLAR DISORDER
     Dosage: DAILY
  3. VYTORIN [Concomitant]
     Indication: BLOOD CHOLESTEROL INCREASED
     Dosage: DAILY
  4. RITALIN [Concomitant]
     Indication: DISTURBANCE IN ATTENTION

REACTIONS (7)
  - AMNESIA [None]
  - BALANCE DISORDER [None]
  - DEAFNESS BILATERAL [None]
  - DEPRESSION [None]
  - DIZZINESS [None]
  - MUSCLE SPASMS [None]
  - TINNITUS [None]
